FAERS Safety Report 7000976-2 (Version None)
Quarter: 2010Q3

REPORT INFORMATION
  Report Type: 
  Country: None (occurrence: None)
  Receive Date: 20100920
  Receipt Date: 20071227
  Transmission Date: 20110219
  Serious: Yes (Other)
  Sender: FDA-Public Use
  Company Number: US-ASTRAZENECA-2006UW10179

PATIENT
  Age: 14806 Day
  Sex: Female
  Weight: 99.8 kg

DRUGS (12)
  1. SEROQUEL [Suspect]
     Indication: DEPRESSION
     Route: 048
     Dates: start: 20020101
  2. SEROQUEL [Suspect]
     Indication: ANXIETY
     Route: 048
     Dates: start: 20020101
  3. SEROQUEL [Suspect]
     Dosage: 25 - 125 MG
     Route: 048
     Dates: start: 20040105, end: 20051205
  4. SEROQUEL [Suspect]
     Dosage: 25 - 125 MG
     Route: 048
     Dates: start: 20040105, end: 20051205
  5. LIPITOR [Concomitant]
     Indication: BLOOD CHOLESTEROL INCREASED
     Dates: start: 20030530
  6. TRAZODONE HCL [Concomitant]
     Dates: start: 20030530
  7. PAXIL [Concomitant]
     Dosage: 10 - 25 MG
     Dates: start: 20030530
  8. ENALAPRIL [Concomitant]
     Indication: ALBUMIN URINE
     Dates: start: 20050224
  9. GLUCOPHAGE [Concomitant]
     Dosage: 500 MG - 1000 MG
     Dates: start: 20050224
  10. PREVACID [Concomitant]
     Dates: start: 20050224, end: 20050913
  11. PROZAC [Concomitant]
     Dates: start: 20050120
  12. LAMICTAL [Concomitant]
     Dosage: 100-200 MGAT BED TIME
     Dates: start: 20050318

REACTIONS (5)
  - DIABETES MELLITUS [None]
  - GLUCOSE TOLERANCE IMPAIRED [None]
  - KETOACIDOSIS [None]
  - PANCREATITIS [None]
  - TYPE 2 DIABETES MELLITUS [None]
